FAERS Safety Report 12169930 (Version 2)
Quarter: 2016Q2

REPORT INFORMATION
  Report Type: Report from Study
  Country: US (occurrence: US)
  Receive Date: 20160310
  Receipt Date: 20160418
  Transmission Date: 20160815
  Serious: No
  Sender: FDA-Public Use
  Company Number: US-AMGEN-USASL2016027530

PATIENT
  Age: 53 Year
  Sex: Female

DRUGS (1)
  1. ENBREL [Suspect]
     Active Substance: ETANERCEPT
     Indication: PSORIASIS
     Dosage: 50 MG, 2 TIMES/WK
     Route: 065
     Dates: start: 201408, end: 201503

REACTIONS (6)
  - Pruritus [Unknown]
  - Drug effect decreased [Unknown]
  - Nasal congestion [Unknown]
  - Rash [Unknown]
  - Arthropathy [Unknown]
  - Hypersensitivity [Unknown]
